FAERS Safety Report 23305652 (Version 1)
Quarter: 2023Q4

REPORT INFORMATION
  Report Type: Spontaneous
  Country: US (occurrence: US)
  Receive Date: 20231218
  Receipt Date: 20231218
  Transmission Date: 20240110
  Serious: No
  Sender: FDA-Public Use
  Company Number: US-SA-SAC20231213000500

PATIENT
  Age: 65 Year
  Sex: Male

DRUGS (1)
  1. DUPIXENT [Suspect]
     Active Substance: DUPILUMAB
     Indication: Rhinitis
     Dosage: 300 MG, QOW
     Route: 058
     Dates: end: 2023

REACTIONS (5)
  - Abdominal discomfort [Unknown]
  - Toothache [Unknown]
  - Eye pain [Unknown]
  - Abdominal pain upper [Unknown]
  - Product use in unapproved indication [Unknown]
